FAERS Safety Report 7459688-3 (Version None)
Quarter: 2011Q2

REPORT INFORMATION
  Report Type: 
  Country: None (occurrence: None)
  Receive Date: 20110505
  Receipt Date: 20110422
  Transmission Date: 20111010
  Serious: Yes (Hospitalization, Other)
  Sender: FDA-Public Use
  Company Number: US-ELI_LILLY_AND_COMPANY-US201102005410

PATIENT
  Sex: Male
  Weight: 70 kg

DRUGS (25)
  1. ALPRAZOLAM [Concomitant]
     Dosage: 1 DF, BID
     Route: 048
  2. METOPROLOL SUCCINATE [Concomitant]
     Dosage: 1 DF, QD
     Route: 048
  3. STOOL SOFTENER [Concomitant]
     Dosage: 2 DF, EACH EVENING
  4. ADVAIR DISKUS 100/50 [Concomitant]
     Dosage: 1 DF, BID
     Route: 055
  5. ASPIRIN [Concomitant]
     Dosage: 1 DF, QD
     Route: 048
  6. FLUTICASONE PROPIONATE [Concomitant]
     Dosage: 1 DF, QD
     Route: 055
  7. NEURONTIN [Concomitant]
     Dosage: 1 DF, TID
     Route: 048
  8. IPRATROPIUM BROMIDE AND ALBUTEROL SULFATE [Concomitant]
     Dosage: 1 DF, EVERY 6 HRS
     Route: 055
  9. LIPITOR [Concomitant]
     Dosage: 1 DF, QD
     Route: 048
  10. NITROSTAT [Concomitant]
     Dosage: 1 DF, QD
     Route: 060
  11. XALATAN [Concomitant]
     Dosage: 1 DF, QD
     Route: 047
  12. DILTIAZEM [Concomitant]
     Dosage: 1 DF, BID
     Route: 048
  13. SYNTHROID [Concomitant]
     Dosage: 1 DF, QD
     Route: 048
  14. FORTEO [Suspect]
     Indication: OSTEOPOROSIS
     Dosage: 20 UG, QD
     Route: 058
     Dates: start: 20101101
  15. FENTANYL [Concomitant]
     Dosage: 1 DF, 3/W
  16. FLUOXETINE HYDROCHLORIDE [Concomitant]
     Dosage: 1 DF, QD
     Route: 048
  17. MORPHINE [Concomitant]
     Dosage: 2 DF, BID
     Route: 048
  18. NEURONTIN [Concomitant]
     Dosage: 1 DF, TID
     Route: 048
  19. POLYETHYLENE GLYCOL [Concomitant]
     Dosage: 1 DF, BID
     Route: 048
  20. OXYGEN [Concomitant]
     Indication: CHRONIC OBSTRUCTIVE PULMONARY DISEASE
     Dosage: 2 UNK, UNK
  21. LIDODERM [Concomitant]
     Dosage: 1 DF, QD
  22. OXYCODONE AND ACETAMINOPHEN [Concomitant]
     Dosage: 1 DF, BID
     Route: 048
  23. PLAVIX [Concomitant]
     Dosage: 1 DF, QD
     Route: 048
  24. PRILOSEC [Concomitant]
     Dosage: 1 DF, QD
     Route: 048
  25. ZETIA [Concomitant]
     Dosage: 1 DF, QD
     Route: 048

REACTIONS (8)
  - PNEUMONIA [None]
  - ARTHRALGIA [None]
  - CONTUSION [None]
  - HYPERTENSION [None]
  - FEMORAL ARTERY OCCLUSION [None]
  - JOINT INJURY [None]
  - PERIPHERAL ARTERIAL OCCLUSIVE DISEASE [None]
  - HYPOKINESIA [None]
